FAERS Safety Report 16581886 (Version 2)
Quarter: 2019Q3

REPORT INFORMATION
  Report Type: Report from Study
  Country: None (occurrence: BR)
  Receive Date: 20190716
  Receipt Date: 20190820
  Transmission Date: 20191004
  Serious: Yes (Hospitalization, Other)
  Sender: FDA-Public Use
  Company Number: BR-ABBVIE-19K-020-2851185-00

PATIENT
  Sex: Female
  Weight: 61 kg

DRUGS (4)
  1. GLIBENCLAMIDE [Concomitant]
     Active Substance: GLYBURIDE
     Indication: DIABETES MELLITUS
  2. METFORMIN [Concomitant]
     Active Substance: METFORMIN HYDROCHLORIDE
     Indication: DIABETES MELLITUS
  3. HUMIRA [Suspect]
     Active Substance: ADALIMUMAB
     Indication: RHEUMATOID ARTHRITIS
     Route: 058
     Dates: end: 20190511
  4. HUMIRA [Suspect]
     Active Substance: ADALIMUMAB
     Route: 058
     Dates: start: 20190802

REACTIONS (6)
  - Procedural pain [Unknown]
  - Complication associated with device [Unknown]
  - Foot deformity [Not Recovered/Not Resolved]
  - Device breakage [Unknown]
  - Arthritis [Unknown]
  - Medical device implantation [Unknown]

NARRATIVE: CASE EVENT DATE: 20190624
